FAERS Safety Report 14524260 (Version 4)
Quarter: 2022Q4

REPORT INFORMATION
  Report Type: Spontaneous
  Country: US (occurrence: None)
  Receive Date: 20180213
  Receipt Date: 20221004
  Transmission Date: 20230113
  Serious: Yes (Other)
  Sender: FDA-Public Use
  Company Number: 2018SE17018

PATIENT
  Sex: Female
  Weight: 140.6 kg

DRUGS (64)
  1. NEXIUM [Suspect]
     Active Substance: ESOMEPRAZOLE MAGNESIUM
     Indication: Gastrointestinal disorder
     Dosage: 40.0MG UNKNOWN
     Route: 048
     Dates: start: 2003, end: 2015
  2. NEXIUM [Suspect]
     Active Substance: ESOMEPRAZOLE MAGNESIUM
     Indication: Abdominal discomfort
     Dosage: 40.0MG UNKNOWN
     Route: 048
     Dates: start: 2003, end: 2015
  3. NEXIUM [Suspect]
     Active Substance: ESOMEPRAZOLE MAGNESIUM
     Indication: Gastrointestinal disorder
     Dosage: ESOMEPRAZOLE40.0MG UNKNOWN
     Route: 065
     Dates: start: 2015, end: 2016
  4. NEXIUM [Suspect]
     Active Substance: ESOMEPRAZOLE MAGNESIUM
     Indication: Abdominal discomfort
     Dosage: ESOMEPRAZOLE40.0MG UNKNOWN
     Route: 065
     Dates: start: 2015, end: 2016
  5. NEXIUM [Suspect]
     Active Substance: ESOMEPRAZOLE MAGNESIUM
     Indication: Gastrointestinal disorder
     Dosage: UNKNOWN
     Route: 048
  6. NEXIUM [Suspect]
     Active Substance: ESOMEPRAZOLE MAGNESIUM
     Indication: Abdominal discomfort
     Dosage: UNKNOWN
     Route: 048
  7. PRILOSEC OTC [Suspect]
     Active Substance: OMEPRAZOLE MAGNESIUM
     Indication: Abdominal discomfort
     Dosage: 20.0MG UNKNOWN
     Route: 048
     Dates: start: 2003, end: 2016
  8. PRILOSEC OTC [Suspect]
     Active Substance: OMEPRAZOLE MAGNESIUM
     Indication: Gastrointestinal disorder
     Dosage: 20.0MG UNKNOWN
     Route: 048
     Dates: start: 2003, end: 2016
  9. PRILOSEC OTC [Suspect]
     Active Substance: OMEPRAZOLE MAGNESIUM
     Indication: Abdominal discomfort
     Dosage: 20.0MG UNKNOWN
     Route: 048
     Dates: start: 2008
  10. PRILOSEC OTC [Suspect]
     Active Substance: OMEPRAZOLE MAGNESIUM
     Indication: Gastrointestinal disorder
     Dosage: 20.0MG UNKNOWN
     Route: 048
     Dates: start: 2008
  11. OMEPRAZOLE [Suspect]
     Active Substance: OMEPRAZOLE
     Indication: Gastrointestinal disorder
     Route: 048
     Dates: start: 2008
  12. OMEPRAZOLE [Suspect]
     Active Substance: OMEPRAZOLE
     Indication: Gastrointestinal disorder
     Route: 065
  13. PREVACID [Suspect]
     Active Substance: LANSOPRAZOLE
     Indication: Gastrointestinal disorder
     Dosage: 30.0MG UNKNOWN
     Route: 065
     Dates: start: 2009
  14. PREVACID [Suspect]
     Active Substance: LANSOPRAZOLE
     Indication: Abdominal discomfort
     Dosage: 30.0MG UNKNOWN
     Route: 065
     Dates: start: 2009
  15. PREVACID 24 HR [Suspect]
     Active Substance: LANSOPRAZOLE
     Indication: Abdominal discomfort
     Dosage: 30.0MG UNKNOWN
     Route: 065
     Dates: start: 2009
  16. PREVACID 24 HR [Suspect]
     Active Substance: LANSOPRAZOLE
     Indication: Gastrointestinal disorder
     Dosage: 30.0MG UNKNOWN
     Route: 065
     Dates: start: 2009
  17. TRAZODONE [Concomitant]
     Active Substance: TRAZODONE HYDROCHLORIDE
     Indication: Depression
     Dosage: 50.0MG UNKNOWN
     Route: 048
     Dates: start: 20040401, end: 2008
  18. TRIAMTERENE [Concomitant]
     Active Substance: TRIAMTERENE
     Indication: Hypertension
     Dates: start: 20040416, end: 2013
  19. NEURONTIN [Concomitant]
     Active Substance: GABAPENTIN
     Indication: Pain
     Dosage: 100.0MG UNKNOWN
     Route: 048
     Dates: start: 20040726, end: 2008
  20. TRAMADOL [Concomitant]
     Active Substance: TRAMADOL
     Indication: Pain
     Dosage: 50.0MG UNKNOWN
     Route: 048
     Dates: start: 20041007, end: 2005
  21. LIPITOR [Concomitant]
     Active Substance: ATORVASTATIN CALCIUM
     Indication: Blood cholesterol increased
  22. CYMBALTA [Concomitant]
     Active Substance: DULOXETINE HYDROCHLORIDE
     Indication: Depression
     Dosage: 30.0MG UNKNOWN
     Route: 048
     Dates: start: 20041122, end: 2013
  23. CLONAZEPAM [Concomitant]
     Active Substance: CLONAZEPAM
     Indication: Anxiety
     Dosage: 1.0MG UNKNOWN
     Route: 048
     Dates: start: 20050422, end: 2014
  24. GABITRIL [Concomitant]
     Active Substance: TIAGABINE HYDROCHLORIDE
     Indication: Seizure
     Dosage: 4.0MG UNKNOWN
     Route: 048
     Dates: start: 20050506, end: 2008
  25. DRAMAMINE [Concomitant]
     Active Substance: DIMENHYDRINATE
     Indication: Nausea
     Dates: start: 2012
  26. POTASSIUM CHLORIDE [Concomitant]
     Active Substance: POTASSIUM CHLORIDE
     Indication: Blood potassium abnormal
     Dosage: 20 TBCR
     Route: 048
     Dates: start: 20110523, end: 2016
  27. PEPCID AC [Concomitant]
     Dates: start: 2013, end: 2015
  28. TAGAMET HB OTC [Concomitant]
     Dates: start: 2013, end: 2015
  29. ZANTAC  150 OTC [Concomitant]
     Dates: start: 2013, end: 2015
  30. TUMS [Concomitant]
     Active Substance: CALCIUM CARBONATE
     Dates: start: 1970, end: 2011
  31. MAALOX ANTACID [Concomitant]
     Active Substance: ALUMINUM HYDROXIDE\DIMETHICONE\MAGNESIUM HYDROXIDE
     Dates: start: 1970, end: 2011
  32. MYLANTA [Concomitant]
     Active Substance: ALUMINUM HYDROXIDE\DIMETHICONE\MAGNESIUM HYDROXIDE
     Dates: start: 1970, end: 2011
  33. ROLAIDS [Concomitant]
     Active Substance: CALCIUM CARBONATE\MAGNESIUM HYDROXIDE
     Dates: start: 1970, end: 2011
  34. PEPTO-BISMOL [Concomitant]
     Active Substance: BISMUTH SUBSALICYLATE
     Dates: start: 1970, end: 2011
  35. LORAZEPAM [Concomitant]
     Active Substance: LORAZEPAM
     Indication: Anxiety
     Dosage: 0.5MG UNKNOWN
     Route: 048
     Dates: start: 20050217, end: 2016
  36. MAGNESIUM OXIDE [Concomitant]
     Active Substance: MAGNESIUM OXIDE
     Indication: Dyspepsia
     Dosage: 250.0MG UNKNOWN
     Route: 048
     Dates: start: 20140811
  37. TYLENOL [Concomitant]
     Active Substance: ACETAMINOPHEN
     Indication: Arthritis
     Route: 048
     Dates: start: 2014
  38. LYRICA [Concomitant]
     Active Substance: PREGABALIN
     Dosage: 50.0MG UNKNOWN
     Route: 048
     Dates: start: 20080718
  39. MORPHINE SULFATE [Concomitant]
     Active Substance: MORPHINE SULFATE
     Dosage: 15 MG IR
     Dates: start: 20090503
  40. CYCLOBENZAPRINE [Concomitant]
     Active Substance: CYCLOBENZAPRINE
     Indication: Muscle spasms
     Dosage: TAKE 1 TABLET 2-3 TIMES DAILY10.0MG UNKNOWN
     Route: 048
  41. AMILORIDE HCL [Concomitant]
     Active Substance: AMILORIDE HYDROCHLORIDE
     Route: 048
     Dates: start: 20141217
  42. ALBUTEROL SULFATE [Concomitant]
     Active Substance: ALBUTEROL SULFATE
     Dosage: USE 1 VIAL IN NEBULIZER EVERY 4 HOURS
     Dates: start: 20150606
  43. ASMANEX [Concomitant]
     Active Substance: MOMETASONE FUROATE
     Dosage: INHALE 2 PUFFS TWICE DAILY, 60 METERED DOSES 220 MCG/INH
     Dates: start: 20140721
  44. FLUTICASONE PROPIONATE [Concomitant]
     Active Substance: FLUTICASONE PROPIONATE
     Dosage: 50 MCG/ACT NASAL SUSPENSION; USE 2 SPRAYS IN EACH NOSTRIL
     Dates: start: 20150506
  45. TEMAZEPAM [Concomitant]
     Active Substance: TEMAZEPAM
     Indication: Abnormal sleep-related event
     Dosage: TAKE 1 CAPSULE AT BEDTIME AS NEEDED FOR SLEEP15.0MG UNKNOWN
     Route: 048
  46. CEFDINIR [Concomitant]
     Active Substance: CEFDINIR
     Route: 048
  47. VITAMINS [Concomitant]
     Active Substance: VITAMINS
     Indication: Routine health maintenance
  48. ALKA-SELTZER [Concomitant]
     Active Substance: ANHYDROUS CITRIC ACID\ASPIRIN\SODIUM BICARBONATE
     Dates: start: 1970, end: 2011
  49. PROAIR HFA [Concomitant]
     Active Substance: ALBUTEROL SULFATE
  50. ENDOCET [Concomitant]
     Active Substance: ACETAMINOPHEN\OXYCODONE HYDROCHLORIDE
  51. CARISOPRODOL [Concomitant]
     Active Substance: CARISOPRODOL
  52. SINGULAIR [Concomitant]
     Active Substance: MONTELUKAST SODIUM
  53. AMITRIPTYLINE HYDROCHLORIDE [Concomitant]
     Active Substance: AMITRIPTYLINE HYDROCHLORIDE
  54. FLUCONAZOLE [Concomitant]
     Active Substance: FLUCONAZOLE
  55. BUDESONIDE [Concomitant]
     Active Substance: BUDESONIDE
  56. OXYCODONE HYDROCHLORIDE [Concomitant]
     Active Substance: OXYCODONE HYDROCHLORIDE
  57. METHYLPREDNISOLONE [Concomitant]
     Active Substance: METHYLPREDNISOLONE
  58. MONTELUKAST SODIUM [Concomitant]
     Active Substance: MONTELUKAST SODIUM
  59. EPIPEN [Concomitant]
     Active Substance: EPINEPHRINE
  60. LUTEIN [Concomitant]
     Active Substance: LUTEIN
  61. CALCIUM [Concomitant]
     Active Substance: CALCIUM
  62. IRON [Concomitant]
     Active Substance: IRON
  63. TRIAMCINOLONE ACETONIDE [Concomitant]
     Active Substance: TRIAMCINOLONE ACETONIDE
  64. MUROS OPCON [Concomitant]

REACTIONS (2)
  - Chronic kidney disease [Not Recovered/Not Resolved]
  - Renal failure [Unknown]
